FAERS Safety Report 6698382-3 (Version None)
Quarter: 2010Q2

REPORT INFORMATION
  Report Type: 
  Country: None (occurrence: None)
  Receive Date: 20100427
  Receipt Date: 20100419
  Transmission Date: 20101027
  Serious: Yes (Death, Other)
  Sender: FDA-Public Use
  Company Number: US-ROCHE-581738

PATIENT
  Sex: Female
  Weight: 81.6 kg

DRUGS (11)
  1. TOCILIZUMAB [Suspect]
     Indication: RHEUMATOID ARTHRITIS
     Dosage: DOSAGE FORM REPORTED AS INFUSION.
     Route: 042
     Dates: start: 20060821, end: 20090817
  2. TOCILIZUMAB [Suspect]
     Dosage: PERMANENTLY DISCONTINUED.
     Route: 042
     Dates: end: 20081030
  3. TOCILIZUMAB [Suspect]
     Dosage: DRUG ADDED AS THIS PATIENT WAS TAKING THIS DRUG IN WA18063 STUDY.
     Route: 042
  4. PLAQUENIL [Concomitant]
     Dates: start: 19950101
  5. MOBIC [Concomitant]
     Dates: start: 19950101
  6. SYNTHROID [Concomitant]
  7. METHOTREXATE [Concomitant]
     Dosage: TDD REPORTED 2.5 UNIT (INACTIVE)
     Dates: start: 19750101
  8. CALCIUM [Concomitant]
     Dates: start: 19940101
  9. DIOVAN [Concomitant]
     Dates: start: 20080619
  10. DETROL LA [Concomitant]
     Dates: start: 20080101
  11. DMARD [Concomitant]
     Indication: CHEMOTHERAPY
     Dosage: DRUG ADDES AS THIS PATIENT WAS TAKING THIS DRUG IN WA18063 STUDY.

REACTIONS (4)
  - ACUTE RESPIRATORY DISTRESS SYNDROME [None]
  - BRONCHITIS VIRAL [None]
  - CELLULITIS [None]
  - NECROTISING FASCIITIS [None]
